FAERS Safety Report 17111068 (Version 1)
Quarter: 2019Q4

REPORT INFORMATION
  Report Type: Spontaneous
  Country: US (occurrence: US)
  Receive Date: 20191111
  Receipt Date: 20191111
  Transmission Date: 20200122
  Serious: No
  Sender: FDA-Public Use
  Company Number: None

PATIENT
  Age: 41 Year
  Sex: Female

DRUGS (1)
  1. REMICADE [Suspect]
     Active Substance: INFLIXIMAB
     Dosage: ?          OTHER
     Route: 017
     Dates: start: 20191111

REACTIONS (2)
  - Pulmonary sarcoidosis [None]
  - Off label use [None]

NARRATIVE: CASE EVENT DATE: 20191111
